FAERS Safety Report 7992056 (Version 6)
Quarter: 2013Q3

REPORT INFORMATION
  Report Type: Report from Study
  Country: CA (occurrence: CA)
  Receive Date: 20110615
  Receipt Date: 20130827
  Transmission Date: 20140515
  Serious: Yes (Hospitalization, Other)
  Sender: FDA-Public Use
  Company Number: PHHY2009CA35156

PATIENT
  Age: 42 Year
  Sex: Male

DRUGS (6)
  1. SANDOSTATIN LAR [Suspect]
     Indication: ACROMEGALY
     Dosage: 20 MG, EVERY 4 WEEKS
     Route: 030
     Dates: start: 20090813
  2. SANDOSTATIN LAR [Suspect]
     Dosage: 20 MG, QMO
     Route: 030
  3. SANDOSTATIN LAR [Suspect]
     Dosage: 20 MG EVERY 4 WEEKS
     Route: 030
     Dates: start: 20110525
  4. SANDOSTATIN LAR [Suspect]
     Dosage: 20 MG EVERY 3 WEEKS
     Route: 030
  5. CABERGOLINE [Concomitant]
     Dosage: 0.25 MG, TWO TIMES PER WEEK
  6. ANDRODERM [Concomitant]
     Indication: BLOOD TESTOSTERONE

REACTIONS (21)
  - Bronchospasm [Recovered/Resolved]
  - Rales [Recovered/Resolved]
  - Rash generalised [Recovered/Resolved]
  - Pruritus [Recovered/Resolved]
  - Blood pressure increased [Unknown]
  - Mental impairment [Unknown]
  - Heart rate decreased [Unknown]
  - Diarrhoea [Recovering/Resolving]
  - Urticaria [Unknown]
  - Nasopharyngitis [Recovering/Resolving]
  - Nasal congestion [Recovering/Resolving]
  - Proctalgia [Unknown]
  - Anorectal discomfort [Unknown]
  - Faeces discoloured [Unknown]
  - Chills [Recovered/Resolved]
  - Blister [Recovered/Resolved]
  - Headache [Unknown]
  - Abdominal distension [Recovering/Resolving]
  - Injection site pain [Unknown]
  - Fatigue [Unknown]
  - Constipation [Unknown]
